FAERS Safety Report 5107941-0 (Version None)
Quarter: 2006Q3

REPORT INFORMATION
  Report Type: 
  Country: None (occurrence: None)
  Receive Date: 20060919
  Receipt Date: 20060913
  Transmission Date: 20061208
  Serious: Yes (Disabling)
  Sender: FDA-Public Use
  Company Number: FR-BRISTOL-MYERS SQUIBB COMPANY-13507900

PATIENT
  Age: 50 Year
  Sex: Male

DRUGS (4)
  1. PRAVASTATIN SODIUM [Suspect]
     Route: 048
     Dates: start: 20040216, end: 20040226
  2. DL-LYSINE ACETYLSALICYLATE [Concomitant]
  3. CLOPIDOGREL BISULFATE [Concomitant]
     Indication: MYOCARDIAL INFARCTION
     Route: 048
     Dates: start: 20040216, end: 20040226
  4. TRIATEC [Concomitant]

REACTIONS (1)
  - POLYMYOSITIS [None]
